FAERS Safety Report 8531514-0 (Version None)
Quarter: 2012Q3

REPORT INFORMATION
  Report Type: 
  Country: None (occurrence: None)
  Receive Date: 20120723
  Receipt Date: 20120713
  Transmission Date: 20120928
  Serious: Yes (Hospitalization)
  Sender: FDA-Public Use
  Company Number: RS-PFIZER INC-2012169235

PATIENT
  Age: 30 Year
  Sex: Female

DRUGS (9)
  1. TACROLIMUS [Interacting]
     Dosage: 3 MG, DAILY
  2. TACROLIMUS [Interacting]
     Indication: IMMUNOSUPPRESSANT DRUG THERAPY
     Dosage: 4.5 MG, 2X/DAY
  3. MYCOPHENOLATE MOFETIL [Concomitant]
     Indication: IMMUNOSUPPRESSANT DRUG THERAPY
     Dosage: 500 MG, 2X/DAY
  4. CARVEDILOL [Concomitant]
     Dosage: 6.25 MG, 2X/DAY
  5. PREDNISONE [Concomitant]
     Indication: IMMUNOSUPPRESSANT DRUG THERAPY
     Dosage: 20 MG, DAILY
  6. METRONIDAZOLE [Suspect]
     Indication: CLOSTRIDIAL INFECTION
     Dosage: 500 MG, 3X/DAY
  7. TACROLIMUS [Interacting]
     Dosage: 2 MG, 2X/DAY
  8. TACROLIMUS [Interacting]
     Dosage: 1 MG, 2X/DAY
  9. METHYLDOPA [Concomitant]
     Dosage: 500 MG, 3X/DAY

REACTIONS (2)
  - DRUG INTERACTION [None]
  - DRUG LEVEL INCREASED [None]
